FAERS Safety Report 9492246 (Version 1)
Quarter: 2013Q3

REPORT INFORMATION
  Report Type: Spontaneous
  Country: GB (occurrence: GB)
  Receive Date: 20130830
  Receipt Date: 20130830
  Transmission Date: 20140515
  Serious: Yes (Hospitalization)
  Sender: FDA-Public Use
  Company Number: GB-PFIZER INC-2013246442

PATIENT
  Age: 30 Year
  Sex: Female
  Weight: 88 kg

DRUGS (9)
  1. LUSTRAL [Suspect]
     Dosage: 50 MG, UNK
     Dates: start: 20130815
  2. VENTOLIN [Concomitant]
     Dosage: UNK
     Dates: start: 20130509, end: 20130711
  3. VENTOLIN [Concomitant]
     Dosage: UNK
     Dates: start: 20130814
  4. BECLOMETASONE DIPROPIONATE [Concomitant]
     Dosage: UNK
     Dates: start: 20130612, end: 20130801
  5. RIGEVIDON [Concomitant]
     Dosage: UNK
     Dates: start: 20130613, end: 20130704
  6. RIGEVIDON [Concomitant]
     Dosage: UNK
     Dates: start: 20130814
  7. CETIRIZINE [Concomitant]
     Dosage: UNK
     Dates: start: 20130613, end: 20130627
  8. FLUTICASONE [Concomitant]
     Dosage: UNK
     Dates: start: 20130613, end: 20130711
  9. FLUTICASONE [Concomitant]
     Dosage: UNK
     Dates: start: 20130814

REACTIONS (2)
  - Swelling face [Recovering/Resolving]
  - Product substitution issue [Unknown]
